FAERS Safety Report 17599709 (Version 3)
Quarter: 2020Q2

REPORT INFORMATION
  Report Type: Spontaneous
  Country: US (occurrence: US)
  Receive Date: 20200330
  Receipt Date: 20200617
  Transmission Date: 20200713
  Serious: Yes (Hospitalization, Other)
  Sender: FDA-Public Use
  Company Number: US-SA-2020SA076501

PATIENT

DRUGS (4)
  1. AUBAGIO [Suspect]
     Active Substance: TERIFLUNOMIDE
     Indication: PRODUCT USED FOR UNKNOWN INDICATION
     Dosage: 1 DF, QD
     Route: 048
  2. BUPRENORPHINE [BUPRENORPHINE HYDROCHLORIDE] [Concomitant]
     Dosage: 20 UG, QH
  3. LISINOPRIL. [Concomitant]
     Active Substance: LISINOPRIL
     Dosage: UNK MG
  4. BUTRANS [Concomitant]
     Active Substance: BUPRENORPHINE
     Dosage: 20 UG, QH

REACTIONS (2)
  - Gastric ulcer [Not Recovered/Not Resolved]
  - Surgery [Unknown]
